FAERS Safety Report 11350701 (Version 1)
Quarter: 2015Q3

REPORT INFORMATION
  Report Type: Spontaneous
  Country: US (occurrence: US)
  Receive Date: 20150807
  Receipt Date: 20150807
  Transmission Date: 20151125
  Serious: No
  Sender: FDA-Public Use
  Company Number: US-JNJFOC-20150512989

PATIENT
  Age: 40 Year
  Sex: Male
  Weight: 104.33 kg

DRUGS (3)
  1. VISINE A [Suspect]
     Active Substance: NAPHAZOLINE HYDROCHLORIDE\PHENIRAMINE MALEATE
     Indication: OCULAR HYPERAEMIA
     Dosage: 2 DROPS IN EACH EYE
     Route: 047
     Dates: start: 20150517, end: 20150517
  2. ANTIHYPERTENSIVES [Concomitant]
     Active Substance: UNSPECIFIED INGREDIENT
     Indication: HYPERTENSION
     Route: 048
  3. VISINE A [Suspect]
     Active Substance: NAPHAZOLINE HYDROCHLORIDE\PHENIRAMINE MALEATE
     Indication: EYE PRURITUS
     Dosage: 2 DROPS IN EACH EYE
     Route: 047
     Dates: start: 20150517, end: 20150517

REACTIONS (1)
  - Drug ineffective [Unknown]
